FAERS Safety Report 8446439-9 (Version None)
Quarter: 2012Q2

REPORT INFORMATION
  Report Type: 
  Country: None (occurrence: None)
  Receive Date: 20120618
  Receipt Date: 20120326
  Transmission Date: 20120825
  Serious: Yes (Other)
  Sender: FDA-Public Use
  Company Number: US-TEVA-329942USA

PATIENT
  Sex: Female

DRUGS (9)
  1. GABAPENTIN [Concomitant]
     Indication: NEUROPATHY PERIPHERAL
     Route: 048
  2. DULOXETINE HYDROCHLORIDE [Concomitant]
     Indication: PAIN
  3. ZOLTAREN [Concomitant]
     Indication: ARTHRITIS
  4. ACTIQ [Suspect]
     Indication: OSTEOARTHRITIS
     Route: 002
     Dates: end: 20120323
  5. FENTANYL CITRATE [Concomitant]
     Indication: PAIN
     Route: 062
  6. OMEPRAZOLE [Concomitant]
     Indication: GASTROOESOPHAGEAL REFLUX DISEASE
     Route: 048
  7. DULOXETINE HYDROCHLORIDE [Concomitant]
     Indication: DEPRESSION
     Route: 048
  8. PRINZIDE                           /00977901/ [Concomitant]
     Route: 048
  9. DIAZEPAM [Concomitant]
     Route: 048

REACTIONS (8)
  - NAUSEA [None]
  - ANXIETY [None]
  - EMOTIONAL DISTRESS [None]
  - CHILLS [None]
  - APPETITE DISORDER [None]
  - HYPERHIDROSIS [None]
  - MIGRAINE [None]
  - DRUG WITHDRAWAL SYNDROME [None]
